FAERS Safety Report 5833864-5 (Version None)
Quarter: 2008Q3

REPORT INFORMATION
  Report Type: 
  Country: None (occurrence: None)
  Receive Date: 20080731
  Receipt Date: 20080717
  Transmission Date: 20090109
  Serious: Yes (Hospitalization)
  Sender: FDA-Public Use
  Company Number: 2008AL003597

PATIENT
  Age: 84 Year
  Sex: Female
  Weight: 72.1219 kg

DRUGS (6)
  1. DIGOXIN [Suspect]
     Indication: ARRHYTHMIA
     Dosage: 0.25MG DAILY PO
     Route: 048
  2. COUMADIN [Concomitant]
  3. METOPOROL [Concomitant]
  4. LISINOPRIL [Concomitant]
  5. FELODIPINE [Concomitant]
  6. DYAZIDE [Concomitant]

REACTIONS (9)
  - BRAIN INJURY [None]
  - CEREBROVASCULAR ACCIDENT [None]
  - CONVULSION [None]
  - DYSPHAGIA [None]
  - INJURY [None]
  - MEMORY IMPAIRMENT [None]
  - PARALYSIS [None]
  - THERAPEUTIC AGENT TOXICITY [None]
  - URINARY TRACT INFECTION [None]
